FAERS Safety Report 5989235-4 (Version None)
Quarter: 2008Q4

REPORT INFORMATION
  Report Type: 
  Country: None (occurrence: None)
  Receive Date: 20081210
  Receipt Date: 20081128
  Transmission Date: 20090506
  Serious: Yes (Hospitalization, Other)
  Sender: FDA-Public Use
  Company Number: US-ROCHE-570091

PATIENT
  Sex: Female
  Weight: 47.6 kg

DRUGS (4)
  1. CAPECITABINE [Suspect]
     Indication: COLORECTAL CANCER
     Dosage: 4 TABLETS TWICE DAILY
     Route: 048
     Dates: start: 20080501
  2. CAPECITABINE [Suspect]
     Dosage: TWO WEEKS ON AND ONE WEEK OFF
     Route: 048
     Dates: start: 20080609, end: 20081126
  3. COLACE [Concomitant]
  4. TRIAMTERENE [Concomitant]

REACTIONS (5)
  - BLISTER [None]
  - DIARRHOEA [None]
  - DISEASE PROGRESSION [None]
  - INCORRECT DRUG ADMINISTRATION DURATION [None]
  - VOMITING [None]
